FAERS Safety Report 4678235-2 (Version None)
Quarter: 2005Q2

REPORT INFORMATION
  Report Type: 
  Country: None (occurrence: None)
  Receive Date: 20050527
  Receipt Date: 20050518
  Transmission Date: 20051028
  Serious: Yes (Other)
  Sender: FDA-Public Use
  Company Number: 2005-05-0991

PATIENT
  Age: 50 Year
  Sex: Male

DRUGS (5)
  1. TEMODAL [Suspect]
     Indication: BRAIN NEOPLASM
     Dosage: 400MG5D/CYC* ORAL
     Route: 048
     Dates: start: 20041201, end: 20041201
  2. TEMODAL [Suspect]
     Indication: BRAIN NEOPLASM
     Dosage: 400MG5D/CYC* ORAL
     Route: 048
     Dates: start: 20050126, end: 20050130
  3. TEMODAL [Suspect]
     Indication: BRAIN NEOPLASM
     Dosage: 400MG5D/CYC* ORAL
     Route: 048
     Dates: start: 20041201, end: 20050301
  4. TEMODAL [Suspect]
     Indication: BRAIN NEOPLASM
     Dosage: 400MG5D/CYC* ORAL
     Route: 048
     Dates: start: 20050301, end: 20050301
  5. BETAPRED TABLETS HIGH-DOSE [Concomitant]

REACTIONS (2)
  - CYSTITIS HAEMORRHAGIC [None]
  - HAEMATURIA [None]
